FAERS Safety Report 5964188-3 (Version None)
Quarter: 2008Q4

REPORT INFORMATION
  Report Type: 
  Country: None (occurrence: None)
  Receive Date: 20081121
  Receipt Date: 20081121
  Transmission Date: 20090506
  Serious: Yes (Hospitalization)
  Sender: FDA-Public Use
  Company Number: None

PATIENT
  Age: 39 Year
  Sex: Female
  Weight: 158.759 kg

DRUGS (2)
  1. BYSTOLIC [Suspect]
     Indication: BLOOD PRESSURE INCREASED
     Dosage: 1 TABLET 1 TIME DAILY PO
     Route: 048
     Dates: start: 20081001, end: 20081117
  2. BYSTOLIC [Suspect]
     Indication: OEDEMA
     Dosage: 1 TABLET 1 TIME DAILY PO
     Route: 048
     Dates: start: 20081001, end: 20081117

REACTIONS (8)
  - ATRIAL FIBRILLATION [None]
  - CHEST DISCOMFORT [None]
  - COLD SWEAT [None]
  - DYSPNOEA [None]
  - HEART RATE INCREASED [None]
  - HEART RATE IRREGULAR [None]
  - IMPAIRED WORK ABILITY [None]
  - PAIN [None]
